FAERS Safety Report 23978041 (Version 1)
Quarter: 2024Q2

REPORT INFORMATION
  Report Type: Spontaneous
  Country: IT (occurrence: IT)
  Receive Date: 20240614
  Receipt Date: 20240614
  Transmission Date: 20240716
  Serious: Yes (Other)
  Sender: FDA-Public Use
  Company Number: None

PATIENT
  Age: 68 Year
  Sex: Female
  Weight: 60 kg

DRUGS (3)
  1. ESCITALOPRAM [Suspect]
     Active Substance: ESCITALOPRAM OXALATE
     Indication: Depression
     Dosage: UNK
     Route: 048
     Dates: end: 2024
  2. Melatonina aurobindo [Concomitant]
     Indication: Insomnia
     Dosage: 4 MG IN THE EVENING PROLONGED RELEASE
     Route: 048
  3. DIAZEPAM [Concomitant]
     Active Substance: DIAZEPAM
     Indication: Anxiety
     Dosage: 10 DROPS IN THE EVENING
     Route: 048

REACTIONS (4)
  - Angioedema [Recovered/Resolved]
  - Paraesthesia [Recovered/Resolved]
  - Psychomotor hyperactivity [Recovered/Resolved]
  - Insomnia [Recovered/Resolved]

NARRATIVE: CASE EVENT DATE: 20240101
